FAERS Safety Report 10169050 (Version 3)
Quarter: 2014Q3

REPORT INFORMATION
  Report Type: Report from Study
  Country: NL (occurrence: NL)
  Receive Date: 20140513
  Receipt Date: 20140829
  Transmission Date: 20150326
  Serious: Yes (Death)
  Sender: FDA-Public Use
  Company Number: NL-SA-2014SA060702

PATIENT
  Age: 62 Year
  Sex: Male
  Weight: 81.4 kg

DRUGS (10)
  1. OMEPRAZOLE. [Concomitant]
     Active Substance: OMEPRAZOLE
  2. FIRMAGON [Concomitant]
     Active Substance: DEGARELIX ACETATE
  3. DOCETAXEL [Concomitant]
     Active Substance: DOCETAXEL
     Dates: start: 201206
  4. ESTRAMUSTINE [Concomitant]
     Active Substance: ESTRAMUSTINE
  5. PREDNISONE. [Concomitant]
     Active Substance: PREDNISONE
     Dosage: DOSE: 2 X 5 MG
     Dates: start: 2011
  6. ZOMETA [Concomitant]
     Active Substance: ZOLEDRONIC ACID
     Route: 042
     Dates: start: 2010
  7. CABAZITAXEL [Suspect]
     Active Substance: CABAZITAXEL
     Indication: PROSTATE CANCER
     Route: 042
     Dates: start: 20121128, end: 20121128
  8. CABAZITAXEL [Suspect]
     Active Substance: CABAZITAXEL
     Indication: PROSTATE CANCER
     Route: 042
     Dates: start: 20130320, end: 20130320
  9. BICALUTAMIDE. [Concomitant]
     Active Substance: BICALUTAMIDE
  10. ABIRATERONE ACETATE [Concomitant]
     Active Substance: ABIRATERONE ACETATE
     Dates: start: 201208

REACTIONS (5)
  - Circulatory collapse [Fatal]
  - Hypothermia [Fatal]
  - Cardiac arrest [Fatal]
  - Adrenal insufficiency [Fatal]
  - Hypoxia [Fatal]
